FAERS Safety Report 14420926 (Version 1)
Quarter: 2018Q1

REPORT INFORMATION
  Report Type: Report from Study
  Country: PT (occurrence: CZ)
  Receive Date: 20180122
  Receipt Date: 20180122
  Transmission Date: 20180509
  Serious: Yes (Congenital Anomaly, Other)
  Sender: FDA-Public Use
  Company Number: PT-SUNOVION-2018SUN000182

PATIENT

DRUGS (3)
  1. LAMOTRIGINE. [Concomitant]
     Active Substance: LAMOTRIGINE
  2. TIAGABINE [Concomitant]
     Active Substance: TIAGABINE
  3. ZEBINIX [Suspect]
     Active Substance: ESLICARBAZEPINE ACETATE
     Indication: PRODUCT USED FOR UNKNOWN INDICATION
     Dosage: 800 MG, QD IN THE FIRST TRIMESTER
     Route: 064

REACTIONS (2)
  - Hypospadias [Unknown]
  - Exposure during pregnancy [Recovered/Resolved]
